FAERS Safety Report 9061701 (Version 2)
Quarter: 2013Q2

REPORT INFORMATION
  Report Type: Report from Study
  Country: BR (occurrence: BR)
  Receive Date: 20130204
  Receipt Date: 20130507
  Transmission Date: 20140414
  Serious: Yes (Other)
  Sender: FDA-Public Use
  Company Number: PHHY2013BR009580

PATIENT
  Age: 56 Year
  Sex: Female
  Weight: 46 kg

DRUGS (4)
  1. ACLASTA [Suspect]
     Indication: OSTEOPENIA
     Dosage: 5 MG/100 ML, ANNUALLY
     Route: 042
     Dates: start: 201201
  2. RIVOTRIL [Concomitant]
     Indication: TENSION
     Dosage: 2 MG, 1 TABLET DAILY AT NIGHT
     Route: 048
  3. PURAN T4 [Concomitant]
     Indication: THYROID DISORDER
     Dosage: 50 MG, 1 TABLET DAILY
     Route: 048
  4. PONDERA [Concomitant]
     Indication: TENSION
     Dosage: 10 MG, 1 TABLET DAILY AT NIGHT
     Route: 048
     Dates: start: 2008

REACTIONS (7)
  - Syncope [Recovered/Resolved]
  - Urinary incontinence [Recovered/Resolved]
  - Pallor [Recovered/Resolved]
  - Somnolence [Recovered/Resolved]
  - Dizziness [Recovered/Resolved]
  - Malaise [Recovered/Resolved]
  - Bone pain [Not Recovered/Not Resolved]
